FAERS Safety Report 7606875-7 (Version None)
Quarter: 2011Q3

REPORT INFORMATION
  Report Type: 
  Country: None (occurrence: None)
  Receive Date: 20110713
  Receipt Date: 20110708
  Transmission Date: 20111222
  Serious: Yes (Other)
  Sender: FDA-Public Use
  Company Number: GB-GLAXOSMITHKLINE-B0728119A

PATIENT
  Age: 26 Year
  Sex: Female

DRUGS (5)
  1. DEXAMETHASONE [Concomitant]
     Indication: PROPHYLAXIS OF NAUSEA AND VOMITING
     Route: 042
  2. ONDANSETRON [Suspect]
     Indication: PROPHYLAXIS OF NAUSEA AND VOMITING
     Route: 065
  3. FENTANYL-100 [Concomitant]
     Indication: INDUCTION OF ANAESTHESIA
     Route: 042
  4. SEVOFLURANE [Concomitant]
     Indication: MAINTENANCE OF ANAESTHESIA
     Route: 055
  5. PROPOFOL [Concomitant]
     Indication: INDUCTION OF ANAESTHESIA
     Route: 042

REACTIONS (4)
  - CONDITION AGGRAVATED [None]
  - PHOTOPHOBIA [None]
  - NAUSEA [None]
  - MIGRAINE [None]
